FAERS Safety Report 12783128 (Version 1)
Quarter: 2016Q3

REPORT INFORMATION
  Report Type: Report from Study
  Country: US (occurrence: US)
  Receive Date: 20160927
  Receipt Date: 20160927
  Transmission Date: 20161109
  Serious: Yes (Other)
  Sender: FDA-Public Use
  Company Number: US-BEH-2009020348

PATIENT

DRUGS (1)
  1. VIVAGLOBIN [Suspect]
     Active Substance: HUMAN IMMUNOGLOBULIN G
     Indication: PRIMARY IMMUNODEFICIENCY SYNDROME
     Route: 058
     Dates: start: 20070622

REACTIONS (4)
  - Drug intolerance [Unknown]
  - Rash [Unknown]
  - Pruritus [Unknown]
  - Type III immune complex mediated reaction [Unknown]

NARRATIVE: CASE EVENT DATE: 2007
